FAERS Safety Report 4391640-7 (Version None)
Quarter: 2004Q3

REPORT INFORMATION
  Report Type: 
  Country: None (occurrence: None)
  Receive Date: 20040701
  Receipt Date: 20040628
  Transmission Date: 20050211
  Serious: Yes (Other)
  Sender: FDA-Public Use
  Company Number: S04-USA-02681-01

PATIENT
  Age: 79 Year
  Sex: Female
  Weight: 87.0906 kg

DRUGS (13)
  1. NAMENDA [Suspect]
     Indication: DEMENTIA
     Dosage: 5 MG BID PO
     Route: 048
     Dates: start: 20040330, end: 20040409
  2. NAMENDA [Suspect]
     Indication: DEMENTIA
     Dosage: 5 MG QD PO
     Route: 048
     Dates: start: 20040323, end: 20040329
  3. HEPARIN [Concomitant]
  4. CATAPRES [Concomitant]
  5. ATENOLOL [Concomitant]
  6. ARICEPT [Concomitant]
  7. LASIX [Concomitant]
  8. DIOVAN HCT [Concomitant]
  9. ASPIRIN [Concomitant]
  10. TIMOPTIC [Concomitant]
  11. MULTI-VITAMIN [Concomitant]
  12. VITAMIN E [Concomitant]
  13. POTASSIUM [Concomitant]

REACTIONS (1)
  - RENAL FAILURE [None]
